FAERS Safety Report 4523174-0 (Version None)
Quarter: 2004Q4

REPORT INFORMATION
  Report Type: 
  Country: None (occurrence: None)
  Receive Date: 20041208
  Receipt Date: 20041122
  Transmission Date: 20050328
  Serious: Yes (Hospitalization)
  Sender: FDA-Public Use
  Company Number: DSA_25439_2004

PATIENT
  Sex: Female

DRUGS (3)
  1. TEMESTA [Suspect]
     Dosage: DF Q DAY TRAN-P
     Route: 064
     Dates: start: 20040401, end: 20040914
  2. NEURONTIN [Suspect]
     Dosage: DF Q DAY TRAN-P
     Route: 064
     Dates: start: 20040401, end: 20040914
  3. TOPIMAX [Suspect]
     Dosage: DF Q DAY TRAN-P
     Route: 064
     Dates: end: 20040914

REACTIONS (2)
  - CONGENITAL VENTRICULAR SEPTAL DEFECT [None]
  - DRUG EXPOSURE DURING PREGNANCY [None]
